FAERS Safety Report 13932286 (Version 2)
Quarter: 2017Q4

REPORT INFORMATION
  Report Type: Spontaneous
  Country: US (occurrence: US)
  Receive Date: 20170904
  Receipt Date: 20171005
  Transmission Date: 20180320
  Serious: No
  Sender: FDA-Public Use
  Company Number: US-PFIZER INC-2017378413

PATIENT
  Age: 61 Year
  Sex: Female

DRUGS (2)
  1. SULFASALAZINE. [Suspect]
     Active Substance: SULFASALAZINE
     Dosage: UNK
  2. METHOTREXATE SODIUM. [Suspect]
     Active Substance: METHOTREXATE SODIUM
     Dosage: UNK

REACTIONS (10)
  - Pain in extremity [Unknown]
  - Joint swelling [Unknown]
  - Pain [Unknown]
  - Peripheral swelling [Unknown]
  - Musculoskeletal stiffness [Unknown]
  - Joint range of motion decreased [Unknown]
  - Musculoskeletal pain [Unknown]
  - Arthralgia [Unknown]
  - Tendonitis [Unknown]
  - Back pain [Unknown]
